FAERS Safety Report 13687289 (Version 1)
Quarter: 2017Q2

REPORT INFORMATION
  Report Type: Spontaneous
  Country: FR (occurrence: FR)
  Receive Date: 20170623
  Receipt Date: 20170623
  Transmission Date: 20170830
  Serious: Yes (Other)
  Sender: FDA-Public Use
  Company Number: FR-GILEAD-2017-0279279

PATIENT
  Age: 59 Year
  Sex: Male

DRUGS (1)
  1. HARVONI [Suspect]
     Active Substance: LEDIPASVIR\SOFOSBUVIR
     Indication: CHRONIC HEPATITIS C
     Dosage: UNK
     Route: 065
     Dates: start: 201611, end: 20170120

REACTIONS (9)
  - Abdominal pain upper [Unknown]
  - Cardiovascular disorder [Unknown]
  - Pain in extremity [Unknown]
  - Fatigue [Unknown]
  - Folliculitis [Unknown]
  - Impatience [Unknown]
  - Crying [Unknown]
  - Muscle fatigue [Unknown]
  - Bone disorder [Unknown]

NARRATIVE: CASE EVENT DATE: 2017
